FAERS Safety Report 15723118 (Version 1)
Quarter: 2018Q4

REPORT INFORMATION
  Report Type: Spontaneous
  Country: US (occurrence: US)
  Receive Date: 20181201
  Receipt Date: 20181201
  Transmission Date: 20190205
  Serious: Yes (Other)
  Sender: FDA-Public Use
  Company Number: None

PATIENT
  Age: 80 Year
  Sex: Female
  Weight: 89.8 kg

DRUGS (16)
  1. IBRANCE [Suspect]
     Active Substance: PALBOCICLIB
     Indication: BREAST CANCER METASTATIC
     Dosage: ?          QUANTITY:21;?
     Route: 048
  2. ERGOCALCIFEROL. [Concomitant]
     Active Substance: ERGOCALCIFEROL
  3. VITAMLN 03, HCTZ 25MG [Concomitant]
  4. NIFEDIPLNE 30MG [Concomitant]
  5. IEVOTHYROXINE (SYNTHROID) 112 MCG TABLET [Concomitant]
  6. IEVOTHYROXLNE 112MCG [Concomitant]
  7. IISINOPNL 40MG [Concomitant]
  8. NIFEDIPINE (ADALAT CC) 30 MG ER TABLET [Concomitant]
  9. IETROZOLE 2.5MG [Concomitant]
  10. IETROZOIE (FEMARA) 2.5 MG TABLET [Concomitant]
  11. ASPIRIN (ECOTRIN) 325MG [Concomitant]
  12. LISINOPRII (PRINIVIL) 40 MG TABLET [Concomitant]
  13. CARVEDILOL 25MG, [Concomitant]
  14. ERGOCALCIFEROL. VITAMIN D2, (DRISDOL) 50,000 UNIT CAPSULE [Concomitant]
  15. HYDROCHLOROTHLAZLDE (HYDRODIURIL) 25 MG TABLET [Concomitant]
  16. ALLOPURINOI 300MG [Concomitant]

REACTIONS (1)
  - Nephropathy toxic [None]

NARRATIVE: CASE EVENT DATE: 20181128
